FAERS Safety Report 9665250 (Version 1)
Quarter: 2013Q4

REPORT INFORMATION
  Report Type: Spontaneous
  Country: BG (occurrence: BG)
  Receive Date: 20131101
  Receipt Date: 20131101
  Transmission Date: 20140711
  Serious: Yes (Hospitalization)
  Sender: FDA-Public Use
  Company Number: BG-ABBVIE-13P-022-1163435-00

PATIENT
  Age: 14 Month
  Sex: Female

DRUGS (1)
  1. VALPROIC ACID [Suspect]
     Indication: PRODUCT USED FOR UNKNOWN INDICATION

REACTIONS (3)
  - Apathy [Recovered/Resolved]
  - Medication error [Unknown]
  - Somnolence [Recovered/Resolved]
